FAERS Safety Report 5282792-5 (Version None)
Quarter: 2007Q2

REPORT INFORMATION
  Report Type: 
  Country: None (occurrence: None)
  Receive Date: 20070402
  Receipt Date: 20070329
  Transmission Date: 20071010
  Serious: Yes (Death, Other)
  Sender: FDA-Public Use
  Company Number: US-ELI_LILLY_AND_COMPANY-US200703006422

PATIENT

DRUGS (1)
  1. ZYPREXA [Suspect]

REACTIONS (2)
  - DEATH [None]
  - MYOCARDIAL INFARCTION [None]
